FAERS Safety Report 8183481-X (Version None)
Quarter: 2012Q1

REPORT INFORMATION
  Report Type: 
  Country: None (occurrence: None)
  Receive Date: 20120305
  Receipt Date: 20120228
  Transmission Date: 20120608
  Serious: Yes (Hospitalization, Other)
  Sender: FDA-Public Use
  Company Number: US-PURDUE-USA-2011-0080347

PATIENT
  Sex: Male

DRUGS (3)
  1. OXYCONTIN [Suspect]
     Indication: PRODUCT USED FOR UNKNOWN INDICATION
     Dosage: 160 MG, AM
     Route: 048
  2. OXYCONTIN [Suspect]
     Dosage: 80 MG, PM
     Route: 048
  3. OXYCODONE HCL [Concomitant]
     Dosage: 30 MG, Q4- 6H PRN
     Route: 048

REACTIONS (2)
  - NECK INJURY [None]
  - FALL [None]
